FAERS Safety Report 10586730 (Version 1)
Quarter: 2014Q4

REPORT INFORMATION
  Report Type: Spontaneous
  Country: US (occurrence: None)
  Receive Date: 20141114
  Receipt Date: 20141114
  Transmission Date: 20150529
  Serious: Yes (Life-Threatening, Hospitalization, Other)
  Sender: FDA-Public Use
  Company Number: None

PATIENT
  Age: 1 Week
  Sex: Male
  Weight: 3.4 kg

DRUGS (2)
  1. HYDROCODONE/ACETAMINOPHEN [Suspect]
     Active Substance: ACETAMINOPHEN\HYDROCODONE
     Indication: BREAST FEEDING
     Dosage: 1, Q6H PRN, ORAL
     Route: 048
     Dates: start: 20141018, end: 20141020
  2. HYDROCODONE/ACETAMINOPHEN [Suspect]
     Active Substance: ACETAMINOPHEN\HYDROCODONE
     Indication: PROCEDURAL PAIN
     Dosage: 1, Q6H PRN, ORAL
     Route: 048
     Dates: start: 20141018, end: 20141020

REACTIONS (5)
  - Crying [None]
  - Somnolence [None]
  - Exposure during breast feeding [None]
  - Feeding disorder neonatal [None]
  - Gastrointestinal disorder [None]

NARRATIVE: CASE EVENT DATE: 20141022
